FAERS Safety Report 10120788 (Version 1)
Quarter: 2014Q2

REPORT INFORMATION
  Report Type: Other
  Country: BE (occurrence: BE)
  Receive Date: 20140425
  Receipt Date: 20140425
  Transmission Date: 20141212
  Serious: Yes (Hospitalization)
  Sender: FDA-Public Use
  Company Number: BE-BRISTOL-MYERS SQUIBB COMPANY-20659025

PATIENT
  Age: 61 Year
  Sex: Female

DRUGS (4)
  1. METFORMIN HCL [Suspect]
  2. IBUPROFEN [Interacting]
     Indication: PROCEDURAL PAIN
  3. VOLTAREN [Interacting]
     Indication: PROCEDURAL PAIN
  4. MANIPREX [Interacting]
     Indication: BIPOLAR DISORDER

REACTIONS (6)
  - Drug interaction [Unknown]
  - Loss of consciousness [Unknown]
  - Renal failure acute [Recovered/Resolved]
  - Toxicity to various agents [Recovering/Resolving]
  - Hypercalcaemia [Recovered/Resolved]
  - Hypoglycaemia [Recovered/Resolved]
